FAERS Safety Report 7516400-7 (Version None)
Quarter: 2011Q2

REPORT INFORMATION
  Report Type: 
  Country: None (occurrence: None)
  Receive Date: 20110601
  Receipt Date: 20110524
  Transmission Date: 20111010
  Serious: Yes (Other)
  Sender: FDA-Public Use
  Company Number: US-BAYER-2011-044447

PATIENT
  Age: 34 Year
  Sex: Female

DRUGS (1)
  1. BETASERON [Suspect]
     Indication: MULTIPLE SCLEROSIS
     Dosage: 2 MIU, QOD
     Route: 058
     Dates: start: 20110521

REACTIONS (5)
  - PAIN [None]
  - MUSCULAR WEAKNESS [None]
  - INSOMNIA [None]
  - ABASIA [None]
  - INFLUENZA LIKE ILLNESS [None]
